FAERS Safety Report 20665339 (Version 1)
Quarter: 2022Q2

REPORT INFORMATION
  Report Type: Report from Study
  Country: DE (occurrence: DE)
  Receive Date: 20220401
  Receipt Date: 20220401
  Transmission Date: 20220721
  Serious: Yes (Death, Other)
  Sender: FDA-Public Use
  Company Number: DE-ARBOR PHARMACEUTICALS, LLC-DE-2022ARB000910

PATIENT

DRUGS (2)
  1. NIMODIPINE [Suspect]
     Active Substance: NIMODIPINE
     Indication: Subarachnoid haemorrhage
     Dosage: 6 ? 60 MG ORALLY EVERY 4H
     Route: 048
  2. NOREPINEPHRINE [Concomitant]
     Active Substance: NOREPINEPHRINE
     Indication: Blood pressure management
     Dosage: UNK

REACTIONS (1)
  - Acute myocardial infarction [Fatal]
